FAERS Safety Report 16233433 (Version 2)
Quarter: 2019Q2

REPORT INFORMATION
  Report Type: Spontaneous
  Country: KR (occurrence: KR)
  Receive Date: 20190424
  Receipt Date: 20190610
  Transmission Date: 20190711
  Serious: Yes (Hospitalization, Other)
  Sender: FDA-Public Use
  Company Number: KR-SA-2019SA103113

PATIENT
  Age: 69 Year
  Sex: Female

DRUGS (8)
  1. DIPHENHYDRAMINE. [Suspect]
     Active Substance: DIPHENHYDRAMINE
     Indication: HEADACHE
     Dosage: 100-250 MG; NORMAL DOSE, 25-50 MG ON DAILY BASIS
     Dates: end: 201503
  2. DIPHENHYDRAMINE. [Suspect]
     Active Substance: DIPHENHYDRAMINE
     Indication: INSOMNIA
  3. PANPYRIN [ACETAMINOPHEN\CAFFEINE\CHLORPHENIRAMINE\ETHENZAMIDE] [Suspect]
     Active Substance: ACETAMINOPHEN\CAFFEINE\CHLORPHENIRAMINE\ETHENZAMIDE
     Indication: INSOMNIA
  4. ZOLPIDEM TARTRATE. [Suspect]
     Active Substance: ZOLPIDEM TARTRATE
     Dosage: INCREASED HER DOSE
  5. ZOLPIDEM TARTRATE. [Suspect]
     Active Substance: ZOLPIDEM TARTRATE
     Dosage: 10 MG
  6. ZOLPIDEM TARTRATE. [Suspect]
     Active Substance: ZOLPIDEM TARTRATE
     Indication: INSOMNIA
     Dosage: 10 MG, QD
     Dates: end: 2015
  7. ZOLPIDEM TARTRATE. [Suspect]
     Active Substance: ZOLPIDEM TARTRATE
     Dosage: WAS TAKING 50-60 MG OF ZOLPIDEM DAILY
  8. PANPYRIN [ACETAMINOPHEN\CAFFEINE\CHLORPHENIRAMINE\ETHENZAMIDE] [Suspect]
     Active Substance: ACETAMINOPHEN\CAFFEINE\CHLORPHENIRAMINE\ETHENZAMIDE
     Indication: HEADACHE
     Dosage: CONSUMING MORE THAN FIVE BOTTLES OF PR DAILY
     Route: 048
     Dates: start: 2003

REACTIONS (8)
  - Drug abuse [Unknown]
  - Drug dependence [Unknown]
  - Confusional state [Recovered/Resolved]
  - Intentional overdose [Unknown]
  - Somnambulism [Recovered/Resolved]
  - Fall [Recovered/Resolved]
  - Self-medication [Recovered/Resolved]
  - Drug ineffective [Unknown]

NARRATIVE: CASE EVENT DATE: 2003
